FAERS Safety Report 9551626 (Version 1)
Quarter: 2013Q3

REPORT INFORMATION
  Report Type: Spontaneous
  Country: US (occurrence: None)
  Receive Date: 20130923
  Receipt Date: 20130923
  Transmission Date: 20140515
  Serious: Yes (Hospitalization)
  Sender: FDA-Public Use
  Company Number: None

PATIENT
  Age: 61 Year
  Sex: Male

DRUGS (3)
  1. PEGASYS [Suspect]
     Indication: CHRONIC HEPATITIS C
     Dosage: INECT 180 MCG UNDER THE SKIN EVERY WEEK
     Dates: start: 20130813
  2. RIBASPHERE [Concomitant]
  3. INCIVEK [Concomitant]

REACTIONS (2)
  - Diarrhoea [None]
  - Dehydration [None]
